FAERS Safety Report 6207114-4 (Version None)
Quarter: 2009Q2

REPORT INFORMATION
  Report Type: 
  Country: None (occurrence: None)
  Receive Date: 20090522
  Receipt Date: 20090303
  Transmission Date: 20091009
  Serious: Yes (Hospitalization)
  Sender: FDA-Public Use
  Company Number: 618168

PATIENT
  Age: 68 Year
  Sex: Male

DRUGS (15)
  1. VALCYTE [Suspect]
     Indication: DRUG USE FOR UNKNOWN INDICATION
     Dosage: 900 MG DAILY
     Dates: start: 20090201
  2. PROGRAF [Concomitant]
  3. CELLCEPT [Concomitant]
  4. PREDNISONE [Concomitant]
  5. ALBUTEROL [Concomitant]
  6. DOFETILIDE [Concomitant]
  7. ASPIRIN [Concomitant]
  8. CRESTOR [Concomitant]
  9. MAG-OX (MAGNESIUM OXIDE) [Concomitant]
  10. MULTIVITAMIN NOS [Concomitant]
  11. CALCIUM [Concomitant]
  12. VITAMIN D (VITAMIN D NOS) [Concomitant]
  13. PREVACID [Concomitant]
  14. AMBIEN [Concomitant]
  15. DAPSONE [Concomitant]

REACTIONS (1)
  - WHITE BLOOD CELL COUNT DECREASED [None]
